FAERS Safety Report 7577541-1 (Version None)
Quarter: 2011Q2

REPORT INFORMATION
  Report Type: 
  Country: None (occurrence: None)
  Receive Date: 20110628
  Receipt Date: 20110614
  Transmission Date: 20111010
  Serious: Yes (Death, Other)
  Sender: FDA-Public Use
  Company Number: IE-JNJFOC-20110607641

PATIENT

DRUGS (4)
  1. MESALAMINE [Concomitant]
  2. IMMUNOSUPPRESSIVE THERAPY [Concomitant]
  3. HYDROCORTISONE [Concomitant]
     Indication: PREMEDICATION
  4. INFLIXIMAB, RECOMBINANT [Suspect]
     Indication: PRODUCT USED FOR UNKNOWN INDICATION
     Route: 042

REACTIONS (1)
  - ADENOCARCINOMA PANCREAS [None]
